FAERS Safety Report 6464378-X (Version None)
Quarter: 2009Q4

REPORT INFORMATION
  Report Type: 
  Country: None (occurrence: None)
  Receive Date: 20091130
  Receipt Date: 20091130
  Transmission Date: 20100525
  Serious: No
  Sender: FDA-Public Use
  Company Number: None

PATIENT
  Age: 47 Year
  Sex: Female
  Weight: 68.0396 kg

DRUGS (4)
  1. MORPHINE SULFATE [Suspect]
     Indication: BACK PAIN
     Dosage: 1 TABLET 3-4 TIMES DAILY PO
     Route: 048
  2. MORPHINE SULFATE [Suspect]
     Indication: INTERVERTEBRAL DISC PROTRUSION
     Dosage: 1 TABLET 3-4 TIMES DAILY PO
     Route: 048
  3. MORPHINE SULFATE [Suspect]
     Indication: SURGERY
     Dosage: 1 TABLET 3-4 TIMES DAILY PO
     Route: 048
  4. MS CONTIN [Concomitant]

REACTIONS (4)
  - ADVERSE EVENT [None]
  - DRUG DISPENSING ERROR [None]
  - PRODUCT FORMULATION ISSUE [None]
  - PRODUCT TASTE ABNORMAL [None]
